FAERS Safety Report 21076239 (Version 1)
Quarter: 2022Q3

REPORT INFORMATION
  Report Type: Spontaneous
  Country: US (occurrence: None)
  Receive Date: 20220713
  Receipt Date: 20220713
  Transmission Date: 20221027
  Serious: No
  Sender: FDA-Public Use
  Company Number: None

PATIENT
  Age: 32 Year
  Sex: Female
  Weight: 56 kg

DRUGS (1)
  1. CASIRIVIMAB\IMDEVIMAB [Suspect]
     Active Substance: CASIRIVIMAB\IMDEVIMAB
     Indication: COVID-19 prophylaxis
     Dosage: FREQUENCY : ONCE;?
     Route: 042
     Dates: start: 20220630, end: 20220630

REACTIONS (2)
  - Fatigue [None]
  - Oropharyngeal pain [None]

NARRATIVE: CASE EVENT DATE: 20220630
